FAERS Safety Report 6405365-7 (Version None)
Quarter: 2009Q4

REPORT INFORMATION
  Report Type: 
  Country: None (occurrence: None)
  Receive Date: 20091016
  Receipt Date: 20091016
  Transmission Date: 20100525
  Serious: No
  Sender: FDA-Public Use
  Company Number: None

PATIENT
  Sex: Female
  Weight: 54.4316 kg

DRUGS (1)
  1. HYDROXYUREA [Suspect]

REACTIONS (4)
  - FOOT FRACTURE [None]
  - OSTEOPOROTIC FRACTURE [None]
  - STRESS FRACTURE [None]
  - WEIGHT INCREASED [None]
